FAERS Safety Report 5143193-3 (Version None)
Quarter: 2006Q4

REPORT INFORMATION
  Report Type: 
  Country: None (occurrence: None)
  Receive Date: 20061030
  Receipt Date: 20061016
  Transmission Date: 20070319
  Serious: No
  Sender: FDA-Public Use
  Company Number: 2006078624

PATIENT
  Age: 45 Year
  Sex: Male
  Weight: 80 kg

DRUGS (6)
  1. ZYVOX [Suspect]
     Indication: PNEUMONIA
     Dosage: 1200 MG (600 MG, 2 IN 1 D) INTRAVENOUS
     Route: 042
     Dates: start: 20060516, end: 20060522
  2. AMBISOME [Concomitant]
  3. DALTEPARIN SODIUM [Concomitant]
  4. LANSOPRAZOLE [Concomitant]
  5. METHYLPREDNISOLONE [Concomitant]
  6. ACETAMINOPHEN [Concomitant]

REACTIONS (1)
  - BLOOD CREATINE PHOSPHOKINASE INCREASED [None]
